FAERS Safety Report 23801964 (Version 1)
Quarter: 2024Q2

REPORT INFORMATION
  Report Type: Spontaneous
  Country: IT (occurrence: IT)
  Receive Date: 20240501
  Receipt Date: 20240501
  Transmission Date: 20240716
  Serious: Yes (Death, Hospitalization, Other)
  Sender: FDA-Public Use
  Company Number: IT-ASTELLAS-2024US012046

PATIENT
  Age: 79 Year
  Sex: Female

DRUGS (4)
  1. XOSPATA [Suspect]
     Active Substance: GILTERITINIB
     Indication: Acute myeloid leukaemia
     Dosage: UNK UNK, UNKNOWN FREQ.
     Route: 065
  2. XOSPATA [Suspect]
     Active Substance: GILTERITINIB
     Dosage: UPTO 200 MG/DAY
     Route: 065
  3. XOSPATA [Suspect]
     Active Substance: GILTERITINIB
     Dosage: 120 MG/DAY
     Route: 065
  4. XOSPATA [Suspect]
     Active Substance: GILTERITINIB
     Dosage: UNK UNK, UNKNOWN FREQ.
     Route: 065

REACTIONS (10)
  - Death [Fatal]
  - H1N1 influenza [Unknown]
  - COVID-19 [Unknown]
  - Pneumonia [Unknown]
  - Renal impairment [Unknown]
  - White blood cell count decreased [Unknown]
  - Diarrhoea [Unknown]
  - Aspartate aminotransferase increased [Recovered/Resolved]
  - Alanine aminotransferase increased [Recovered/Resolved]
  - Platelet count decreased [Unknown]
